FAERS Safety Report 4567248-7 (Version None)
Quarter: 2005Q1

REPORT INFORMATION
  Report Type: 
  Country: None (occurrence: None)
  Receive Date: 20050127
  Receipt Date: 20050121
  Transmission Date: 20050727
  Serious: Yes (Hospitalization)
  Sender: FDA-Public Use
  Company Number: KII-2005-0014783

PATIENT
  Age: 88 Year
  Sex: Female

DRUGS (1)
  1. MORPHINE SULFATE [Suspect]
     Dosage: ORAL
     Route: 048

REACTIONS (5)
  - BODY TEMPERATURE INCREASED [None]
  - MEDICATION ERROR [None]
  - NAUSEA [None]
  - RESPIRATORY RATE INCREASED [None]
  - SOMNOLENCE [None]
